FAERS Safety Report 5042653-3 (Version None)
Quarter: 2006Q3

REPORT INFORMATION
  Report Type: 
  Country: None (occurrence: None)
  Receive Date: 20060705
  Receipt Date: 20050822
  Transmission Date: 20061208
  Serious: Yes (Life-Threatening)
  Sender: FDA-Public Use
  Company Number: GB-SANOFI-SYNTHELABO-F01200501625

PATIENT
  Sex: Male

DRUGS (6)
  1. CAPECITABINE [Suspect]
     Dosage: 2000 MG TWICE DAILY FOR TWO WEEKS OF EACH THREE WEEK CYCLE
     Route: 048
  2. OXALIPLATIN [Suspect]
     Indication: COLORECTAL CANCER METASTATIC
     Route: 042
  3. WARFARIN SODIUM [Concomitant]
     Dates: start: 20050322
  4. DEXAMETHASONE TAB [Concomitant]
     Dates: start: 20041229
  5. CODEINE PHOSPHATE [Concomitant]
     Dates: start: 20041229
  6. BEVACIZUMAB OR PLACEBO [Suspect]
     Dates: start: 20050302, end: 20050302

REACTIONS (1)
  - DYSAESTHESIA PHARYNX [None]
